FAERS Safety Report 5915191-0 (Version None)
Quarter: 2008Q4

REPORT INFORMATION
  Report Type: 
  Country: None (occurrence: None)
  Receive Date: 20081010
  Receipt Date: 20080930
  Transmission Date: 20090506
  Serious: Yes (Other)
  Sender: FDA-Public Use
  Company Number: AU-JNJFOC-20081000399

PATIENT
  Age: 67 Year
  Sex: Male

DRUGS (1)
  1. REMICADE [Suspect]
     Indication: PSORIASIS
     Dosage: TOTAL OF 3 DOSES ADMINSTERED (DATES UNKNOWN FOR DOSE 2 AND 3)
     Route: 042

REACTIONS (11)
  - ANOREXIA [None]
  - C-REACTIVE PROTEIN INCREASED [None]
  - DYSPHONIA [None]
  - DYSPNOEA [None]
  - MALAISE [None]
  - MUSCLE SPASMS [None]
  - MYALGIA [None]
  - PAIN OF SKIN [None]
  - PARAESTHESIA [None]
  - TYPE IV HYPERSENSITIVITY REACTION [None]
  - WEIGHT DECREASED [None]
